FAERS Safety Report 24564158 (Version 5)
Quarter: 2024Q4

REPORT INFORMATION
  Report Type: Spontaneous
  Country: US (occurrence: US)
  Receive Date: 20241030
  Receipt Date: 20241213
  Transmission Date: 20250115
  Serious: No
  Sender: BAUSCH AND LOMB
  Company Number: US-BAUSCHBL-2024BNL036416

PATIENT
  Age: 65 Year
  Sex: Male

DRUGS (3)
  1. TIMOPTIC [Suspect]
     Active Substance: TIMOLOL MALEATE
     Indication: Glaucoma
     Route: 047
     Dates: start: 2019, end: 2022
  2. TIMOPTIC [Suspect]
     Active Substance: TIMOLOL MALEATE
     Route: 047
     Dates: start: 20241022
  3. ACETAZOLAMIDE [Concomitant]
     Active Substance: ACETAZOLAMIDE
     Indication: Intraocular pressure test
     Dosage: THERAPY DATES: 3 YEAR^S
     Route: 065

REACTIONS (10)
  - Intraocular pressure test abnormal [Unknown]
  - Visual impairment [Unknown]
  - Eye pruritus [Unknown]
  - Photophobia [Unknown]
  - Drug ineffective [Unknown]
  - Product use complaint [Unknown]
  - Wrong technique in product usage process [Unknown]
  - Wrong dose [Unknown]
  - Product container issue [Unknown]
  - Product use complaint [Unknown]

NARRATIVE: CASE EVENT DATE: 20240101
